FAERS Safety Report 24568014 (Version 2)
Quarter: 2024Q4

REPORT INFORMATION
  Report Type: Spontaneous
  Country: US (occurrence: US)
  Receive Date: 20241031
  Receipt Date: 20241114
  Transmission Date: 20250115
  Serious: Yes (Disabling, Other)
  Sender: ELI LILLY AND COMPANY
  Company Number: US-ELI_LILLY_AND_COMPANY-US202410021804

PATIENT
  Age: 68 Year
  Sex: Male

DRUGS (9)
  1. HUMALOG [Suspect]
     Active Substance: INSULIN LISPRO
     Indication: Type 1 diabetes mellitus
     Dosage: 12 U, PRN (6 UNITS WHEN THEIR SUGAR WAS HIGH/5 OR 6 TIMES A DAY)
     Route: 058
  2. HUMALOG [Suspect]
     Active Substance: INSULIN LISPRO
     Indication: Type 1 diabetes mellitus
     Dosage: 12 U, PRN (6 UNITS WHEN THEIR SUGAR WAS HIGH/5 OR 6 TIMES A DAY)
     Route: 058
  3. HUMALOG [Suspect]
     Active Substance: INSULIN LISPRO
     Dosage: 12 U, PRN (6 UNITS WHEN THEIR SUGAR WAS HIGH/5 OR 6 TIMES A DAY)
     Route: 058
  4. HUMALOG [Suspect]
     Active Substance: INSULIN LISPRO
     Dosage: 12 U, PRN (6 UNITS WHEN THEIR SUGAR WAS HIGH/5 OR 6 TIMES A DAY)
     Route: 058
  5. HUMALOG [Suspect]
     Active Substance: INSULIN LISPRO
     Indication: Type 1 diabetes mellitus
     Dosage: UNK UNK, UNKNOWN
     Route: 058
  6. HUMALOG MIX75/25 [Suspect]
     Active Substance: INSULIN LISPRO
     Indication: Type 1 diabetes mellitus
     Dosage: UNK UNK, UNKNOWN
     Route: 058
  7. NOVOLOG [Suspect]
     Active Substance: INSULIN ASPART
     Indication: Type 1 diabetes mellitus
     Dosage: UNK UNK, UNKNOWN
     Route: 065
  8. LANTUS [Concomitant]
     Active Substance: INSULIN GLARGINE
     Indication: Type 1 diabetes mellitus
  9. TOUJEO [Concomitant]
     Active Substance: INSULIN GLARGINE
     Indication: Type 1 diabetes mellitus

REACTIONS (14)
  - Blindness unilateral [Not Recovered/Not Resolved]
  - Skin ulcer [Unknown]
  - Procedural pain [Unknown]
  - Limb injury [Unknown]
  - Localised infection [Unknown]
  - Loss of consciousness [Unknown]
  - Hypoacusis [Unknown]
  - Blood glucose increased [Not Recovered/Not Resolved]
  - Amblyopia [Not Recovered/Not Resolved]
  - Skin odour abnormal [Unknown]
  - Hypoaesthesia [Not Recovered/Not Resolved]
  - Accidental underdose [Unknown]
  - Drug hypersensitivity [Unknown]
  - Hypoglycaemia [Recovered/Resolved]

NARRATIVE: CASE EVENT DATE: 20090718
